FAERS Safety Report 12186952 (Version 1)
Quarter: 2016Q1

REPORT INFORMATION
  Report Type: Spontaneous
  Country: US (occurrence: US)
  Receive Date: 20160317
  Receipt Date: 20160317
  Transmission Date: 20160526
  Serious: No
  Sender: FDA-Public Use
  Company Number: US-WARNER CHILCOTT, LLC-1049238

PATIENT
  Age: 73 Year
  Sex: Female

DRUGS (4)
  1. ESTRACE [Suspect]
     Active Substance: ESTRADIOL
     Indication: ATROPHIC VULVOVAGINITIS
     Route: 067
     Dates: start: 20150304, end: 20150308
  2. METOPROLOL. [Concomitant]
     Active Substance: METOPROLOL
  3. LORAZEPAM. [Concomitant]
     Active Substance: LORAZEPAM
  4. DEXLANSOPRAZOLE [Concomitant]
     Active Substance: DEXLANSOPRAZOLE

REACTIONS (2)
  - Vulvovaginal burning sensation [Recovered/Resolved]
  - Vulvovaginal pain [Recovered/Resolved]

NARRATIVE: CASE EVENT DATE: 201503
